FAERS Safety Report 10689031 (Version 1)
Quarter: 2015Q1

REPORT INFORMATION
  Report Type: Spontaneous
  Country: US (occurrence: US)
  Receive Date: 20150104
  Receipt Date: 20150104
  Transmission Date: 20150720
  Serious: No
  Sender: FDA-Public Use
  Company Number: US-GLAXOSMITHKLINE-US2014GSK045043

PATIENT
  Sex: Male

DRUGS (1)
  1. FLONASE [Suspect]
     Active Substance: FLUTICASONE PROPIONATE
     Indication: NASAL CONGESTION
     Dosage: UNK
     Route: 055

REACTIONS (5)
  - Oropharyngeal pain [Unknown]
  - Dry throat [Unknown]
  - Pyrexia [Unknown]
  - Cough [Unknown]
  - Eating disorder [Unknown]

NARRATIVE: CASE EVENT DATE: 201409
